FAERS Safety Report 4690077-0 (Version None)
Quarter: 2005Q2

REPORT INFORMATION
  Report Type: 
  Country: None (occurrence: None)
  Receive Date: 20050614
  Receipt Date: 20050601
  Transmission Date: 20051028
  Serious: Yes (Other)
  Sender: FDA-Public Use
  Company Number: JP2005001

PATIENT
  Sex: Female

DRUGS (1)
  1. GASTER D/FAMOTIDINE, ORALLY DISINTEGRATING TABLET [Suspect]
     Route: 048

REACTIONS (1)
  - NEPHRITIS [None]
